FAERS Safety Report 6069707-7 (Version None)
Quarter: 2009Q1

REPORT INFORMATION
  Report Type: 
  Country: None (occurrence: None)
  Receive Date: 20090209
  Receipt Date: 20090129
  Transmission Date: 20090719
  Serious: Yes (Hospitalization)
  Sender: FDA-Public Use
  Company Number: DE-BAYER-200911904GPV

PATIENT
  Age: 25 Year
  Sex: Female

DRUGS (2)
  1. VALETTE [Suspect]
     Indication: DRUG USE FOR UNKNOWN INDICATION
     Dosage: TOTAL DAILY DOSE: 1 DF
     Route: 048
     Dates: start: 20081201, end: 20090101
  2. YASMIN [Suspect]
     Indication: ORAL CONTRACEPTION
     Route: 065
     Dates: start: 20081101, end: 20081201

REACTIONS (1)
  - OPTIC ISCHAEMIC NEUROPATHY [None]
